FAERS Safety Report 12455662 (Version 5)
Quarter: 2016Q3

REPORT INFORMATION
  Report Type: Spontaneous
  Country: FR (occurrence: FR)
  Receive Date: 20160610
  Receipt Date: 20160706
  Transmission Date: 20161109
  Serious: Yes (Life-Threatening, Hospitalization)
  Sender: FDA-Public Use
  Company Number: FR-PFIZER INC-2016282548

PATIENT
  Age: 86 Year
  Sex: Female

DRUGS (13)
  1. LOVENOX [Interacting]
     Active Substance: ENOXAPARIN SODIUM
     Indication: ATRIAL FIBRILLATION
     Dosage: 4000 IU, UNK
     Route: 058
     Dates: start: 20160401
  2. TRIFLUCAN [Suspect]
     Active Substance: FLUCONAZOLE
     Indication: ORAL FUNGAL INFECTION
     Dosage: 100 MG, 1X/DAY
     Route: 048
     Dates: start: 20160422
  3. DOLIPRANE [Interacting]
     Active Substance: ACETAMINOPHEN
     Dosage: 1 G, 4X/DAY
     Route: 048
     Dates: start: 20160409, end: 20160409
  4. PRIMPERAN [Concomitant]
     Active Substance: METOCLOPRAMIDE HYDROCHLORIDE
     Dosage: 10 MG, 3X/DAY
     Dates: start: 20160409
  5. EUPANTOL [Concomitant]
     Active Substance: PANTOPRAZOLE SODIUM
     Dosage: 40 MG, 1X/DAY
  6. CORDARONE [Interacting]
     Active Substance: AMIODARONE HYDROCHLORIDE
     Indication: ATRIAL FIBRILLATION
     Dosage: 200 MG, 1X/DAY
     Route: 048
     Dates: start: 20160406
  7. LOVENOX [Interacting]
     Active Substance: ENOXAPARIN SODIUM
     Indication: POSTOPERATIVE CARE
     Dosage: 8000 IU, 2X/DAY
     Route: 058
     Dates: start: 20160406, end: 20160503
  8. CONTRAMAL [Interacting]
     Active Substance: TRAMADOL HYDROCHLORIDE
     Dosage: 50 MG, 3X/DAY
     Route: 048
     Dates: start: 20160409, end: 20160409
  9. PREVISCAN [Interacting]
     Active Substance: FLUINDIONE
     Indication: ATRIAL FIBRILLATION
     Dosage: 20 MG, 1X/DAY
     Route: 048
     Dates: start: 20160421, end: 20160503
  10. CORTANCYL [Interacting]
     Active Substance: PREDNISONE
     Indication: RHEUMATOID ARTHRITIS
     Dosage: 5 MG, 1X/DAY
     Route: 048
  11. ALPRAZOLAM. [Concomitant]
     Active Substance: ALPRAZOLAM
     Dosage: 1 DF, DAILY
  12. LEVOTHYROX [Concomitant]
     Active Substance: LEVOTHYROXINE
     Dosage: 50 UG, 1X/DAY
  13. ZOPHREN [Concomitant]
     Active Substance: ONDANSETRON
     Dosage: 4 MG, 3X/DAY
     Dates: start: 20160409

REACTIONS (4)
  - Haematoma [Recovering/Resolving]
  - Ecchymosis [Recovering/Resolving]
  - Epistaxis [Recovering/Resolving]
  - Drug interaction [Recovering/Resolving]

NARRATIVE: CASE EVENT DATE: 20160503
